FAERS Safety Report 5383450-9 (Version None)
Quarter: 2007Q3

REPORT INFORMATION
  Report Type: 
  Country: None (occurrence: None)
  Receive Date: 20070710
  Receipt Date: 20070705
  Transmission Date: 20080115
  Serious: Yes (Hospitalization)
  Sender: FDA-Public Use
  Company Number: TW-BOEHRINGER INGELHEIM PHARMACEUTICALS, INC.-2007-BP-16267SG

PATIENT
  Sex: Female
  Weight: 50 kg

DRUGS (3)
  1. TELMISARTAN TABLETS [Suspect]
     Indication: HYPERTENSION
     Route: 048
     Dates: start: 20070612, end: 20070616
  2. SULINDAC [Suspect]
     Indication: OSTEOARTHRITIS
     Route: 048
     Dates: start: 20070612
  3. AMLODIPINE [Concomitant]
     Indication: HYPERTENSION
     Route: 048
     Dates: start: 20050215

REACTIONS (3)
  - GASTRITIS [None]
  - HIATUS HERNIA [None]
  - UPPER GASTROINTESTINAL HAEMORRHAGE [None]
